FAERS Safety Report 20675422 (Version 5)
Quarter: 2023Q1

REPORT INFORMATION
  Report Type: Spontaneous
  Country: US (occurrence: US)
  Receive Date: 20220405
  Receipt Date: 20230323
  Transmission Date: 20230418
  Serious: Yes (Hospitalization, Other)
  Sender: FDA-Public Use
  Company Number: US-PFIZER INC-202101325819

PATIENT
  Age: 63 Year
  Sex: Female
  Weight: 64.41 kg

DRUGS (8)
  1. IBRANCE [Suspect]
     Active Substance: PALBOCICLIB
     Indication: Neoplasm malignant
     Dosage: UNK
     Dates: start: 20201002
  2. IBRANCE [Suspect]
     Active Substance: PALBOCICLIB
     Indication: Breast cancer female
     Dosage: 75 MG, CYCLIC (21 DAYS AND THEN 7 DAYS OFF)
     Route: 048
     Dates: start: 201804
  3. IBRANCE [Suspect]
     Active Substance: PALBOCICLIB
     Dosage: 75 MG, CYCLIC (21 DAYS AND THEN 7 DAYS OFF)
     Route: 048
     Dates: start: 201809
  4. XGEVA [Concomitant]
     Active Substance: DENOSUMAB
     Dosage: UNK (SHOT EVERY 3 MONTHS)
     Dates: start: 201804
  5. LETROZOLE [Concomitant]
     Active Substance: LETROZOLE
     Indication: Breast cancer
     Dosage: 2.5 MG, 1X/DAY
     Dates: start: 201804
  6. ESCITALOPRAM [Concomitant]
     Active Substance: ESCITALOPRAM OXALATE
     Indication: Breast cancer
     Dosage: 10 MG, 1X/DAY
     Dates: start: 201804
  7. VITAMIN B12 [Concomitant]
     Active Substance: CYANOCOBALAMIN
     Dosage: 1000 MG (VIT B 12 JARROW 1000MG METHYL)
     Dates: start: 202004
  8. VITAMIN D3 [Concomitant]
     Active Substance: CHOLECALCIFEROL
     Dosage: 25 UG
     Dates: start: 202004

REACTIONS (11)
  - Nephrolithiasis [Unknown]
  - Intentional product misuse [Unknown]
  - COVID-19 [Recovering/Resolving]
  - Pain [Unknown]
  - Fatigue [Unknown]
  - Full blood count abnormal [Unknown]
  - White blood cell count decreased [Unknown]
  - Burning sensation [Unknown]
  - Dry skin [Unknown]
  - Sleep disorder [Unknown]
  - Stress [Unknown]
